FAERS Safety Report 17502315 (Version 4)
Quarter: 2021Q1

REPORT INFORMATION
  Report Type: Other
  Country: US (occurrence: US)
  Receive Date: 20200305
  Receipt Date: 20210312
  Transmission Date: 20210419
  Serious: Yes (Hospitalization)
  Sender: FDA-Public Use
  Company Number: US-ROCHE-2560659

PATIENT
  Age: 43 Year
  Sex: Male
  Weight: 83.99 kg

DRUGS (14)
  1. OCREVUS [Suspect]
     Active Substance: OCRELIZUMAB
     Indication: MULTIPLE SCLEROSIS
     Dosage: ONGOING: UNKNOWN
     Route: 065
     Dates: start: 20190617
  2. MAGNESIUM [Concomitant]
     Active Substance: MAGNESIUM
     Dosage: ONGOING YES
     Route: 048
     Dates: start: 201711
  3. AMPYRA [Concomitant]
     Active Substance: DALFAMPRIDINE
     Indication: GAIT DISTURBANCE
     Route: 048
     Dates: start: 201805
  4. OCREVUS [Suspect]
     Active Substance: OCRELIZUMAB
     Dosage: ONGOING: NO
     Route: 042
     Dates: start: 201806, end: 201806
  5. VITAMIN D3 [Concomitant]
     Active Substance: CHOLECALCIFEROL
     Dosage: ONGOING: YES
     Route: 048
     Dates: start: 2019
  6. MODAFINIL. [Concomitant]
     Active Substance: MODAFINIL
     Indication: FATIGUE
     Dosage: ONGOING YES
     Route: 048
     Dates: start: 2019
  7. PROVIGIL [Concomitant]
     Active Substance: MODAFINIL
     Indication: FATIGUE
     Dosage: ONGOING YES
     Route: 048
     Dates: start: 201910
  8. AMANTADINE. [Concomitant]
     Active Substance: AMANTADINE HYDROCHLORIDE
     Indication: FATIGUE
     Route: 048
     Dates: start: 201803, end: 201910
  9. URSOLIC ACID [Concomitant]
     Active Substance: DIETARY SUPPLEMENT
     Dosage: ONGOING: YES
     Route: 048
     Dates: start: 202006
  10. HOLY BASIL [Concomitant]
     Indication: INFLAMMATION
     Route: 048
     Dates: start: 202006
  11. OCREVUS [Suspect]
     Active Substance: OCRELIZUMAB
     Indication: RELAPSING-REMITTING MULTIPLE SCLEROSIS
     Dosage: ONGOING: YES
     Route: 042
     Dates: start: 2019
  12. VITAMIN D3 [Concomitant]
     Active Substance: CHOLECALCIFEROL
     Route: 048
     Dates: start: 201801
  13. ZYRTEC (UNITED STATES) [Concomitant]
     Dosage: ONGOING YES
     Route: 048
     Dates: start: 2018
  14. TURMERIC [Concomitant]
     Active Substance: HERBALS\TURMERIC
     Dosage: ONGOING: YES
     Route: 048
     Dates: start: 2019

REACTIONS (12)
  - Pyrexia [Recovered/Resolved]
  - Gait disturbance [Not Recovered/Not Resolved]
  - Headache [Recovered/Resolved]
  - Fatigue [Not Recovered/Not Resolved]
  - Herpes zoster [Recovered/Resolved]
  - Fall [Unknown]
  - Lethargy [Recovered/Resolved]
  - Facial paralysis [Recovered/Resolved]
  - Blood test abnormal [Not Recovered/Not Resolved]
  - Dysstasia [Not Recovered/Not Resolved]
  - Muscle spasticity [Not Recovered/Not Resolved]
  - Muscular weakness [Not Recovered/Not Resolved]

NARRATIVE: CASE EVENT DATE: 201812
